FAERS Safety Report 10618535 (Version 1)
Quarter: 2014Q4

REPORT INFORMATION
  Report Type: Spontaneous
  Country: US (occurrence: None)
  Receive Date: 20141125
  Receipt Date: 20141125
  Transmission Date: 20150529
  Serious: Yes (Hospitalization, Other)
  Sender: FDA-Public Use
  Company Number: A1058751A

PATIENT
  Age: 56 Year
  Sex: Male

DRUGS (16)
  1. DEPO-TESTOSTERONE (TESTOSTERONE CIPIONATE) [Concomitant]
  2. TRAMADOL (TRAMADOL) [Concomitant]
     Active Substance: TRAMADOL
  3. HYDROCHLOROTHIAZIDE (HYDROCHLOROTHIAZIDE) [Concomitant]
     Active Substance: HYDROCHLOROTHIAZIDE
  4. HYDROXYZINE (HYDROXYZINE) [Concomitant]
     Active Substance: HYDROXYZINE HYDROCHLORIDE
  5. FLOMAX (AMBIGUOUS MEDICATION) [Concomitant]
  6. VALTREX [Concomitant]
     Active Substance: VALACYCLOVIR HYDROCHLORIDE
  7. INTELENCE [Suspect]
     Active Substance: ETRAVIRINE
     Indication: PRODUCT USED FOR UNKNOWN INDICATION
  8. FOSAMAX [Concomitant]
     Active Substance: ALENDRONATE SODIUM
  9. NIACIN (NICOTINIC ACID) [Concomitant]
  10. CIALIS [Concomitant]
     Active Substance: TADALAFIL
  11. NORVIR [Suspect]
     Active Substance: RITONAVIR
     Indication: PRODUCT USED FOR UNKNOWN INDICATION
  12. TRUVADA (EMTRICITABINE + TENOFOVIR DISOPROXIL FUMARATE) [Concomitant]
  13. POTASSIUM CHLORIDE (POTASSIUM CHLORIDE) [Concomitant]
     Active Substance: POTASSIUM CHLORIDE
  14. TIVICAY [Suspect]
     Active Substance: DOLUTEGRAVIR SODIUM
     Indication: HIV INFECTION
     Dosage: U, UNKNOWN
     Dates: start: 201009
  15. CRESTOR [Concomitant]
     Active Substance: ROSUVASTATIN CALCIUM
  16. PREZISTA [Suspect]
     Active Substance: DARUNAVIR ETHANOLATE
     Indication: PRODUCT USED FOR UNKNOWN INDICATION

REACTIONS (9)
  - Staphylococcal infection [None]
  - Postoperative wound infection [None]
  - Cardiac ablation [None]
  - Intervertebral disc protrusion [None]
  - Coronary artery bypass [None]
  - Cardiac failure congestive [None]
  - Atrial fibrillation [None]
  - Cardioversion [None]
  - Mycotic allergy [None]

NARRATIVE: CASE EVENT DATE: 201301
